FAERS Safety Report 9912460 (Version 2)
Quarter: 2014Q1

REPORT INFORMATION
  Report Type: Report from Study
  Country: MX (occurrence: MX)
  Receive Date: 20140220
  Receipt Date: 20140220
  Transmission Date: 20141002
  Serious: Yes (Death, Disabling, Other)
  Sender: FDA-Public Use
  Company Number: MX-ORION CORPORATION ORION PHARMA-ENTC2012-0200

PATIENT
  Sex: Male

DRUGS (4)
  1. STALEVO [Suspect]
     Indication: PARKINSON^S DISEASE
     Dosage: STRENGTH: 150/37.5/200 MG
     Route: 048
     Dates: start: 201204
  2. LEVOTIROXINA [Concomitant]
     Indication: THYROID DISORDER
     Route: 065
     Dates: start: 20120404
  3. LIPITOR [Concomitant]
     Route: 065
  4. MODURETIC [Concomitant]
     Dosage: 1/2 TABLET EVERY THIRD DAY
     Route: 065

REACTIONS (5)
  - Respiratory failure [Fatal]
  - Cardiac failure [Fatal]
  - Product quality issue [Unknown]
  - Diet refusal [Unknown]
  - Aphasia [Unknown]
